FAERS Safety Report 10917813 (Version 6)
Quarter: 2018Q1

REPORT INFORMATION
  Report Type: Spontaneous
  Country: DE (occurrence: DE)
  Receive Date: 20150316
  Receipt Date: 20180322
  Transmission Date: 20180508
  Serious: Yes (Disabling, Other)
  Sender: FDA-Public Use
  Company Number: DE-PFIZER INC-2015092144

PATIENT
  Age: 47 Year
  Sex: Female

DRUGS (7)
  1. SERTRALINE HCL [Suspect]
     Active Substance: SERTRALINE HYDROCHLORIDE
     Indication: DEPRESSION
     Dosage: 75 MG/DL
  2. SERTRALINE HCL [Suspect]
     Active Substance: SERTRALINE HYDROCHLORIDE
     Indication: INSOMNIA
  3. ST. JOHN^S WORT [Suspect]
     Active Substance: ST. JOHN^S WORT
     Indication: DEPRESSION
     Dosage: UNK
  4. TAMOXIFEN CITRATE. [Suspect]
     Active Substance: TAMOXIFEN CITRATE
     Indication: BREAST CANCER
     Dosage: SIX CYCLES
     Dates: start: 200812
  5. DOCETAXEL. [Suspect]
     Active Substance: DOCETAXEL
     Indication: BREAST CANCER
     Dosage: SIX CYCLES
  6. ST. JOHN^S WORT [Suspect]
     Active Substance: ST. JOHN^S WORT
     Indication: INSOMNIA
  7. EPIRUBICIN HCL [Suspect]
     Active Substance: EPIRUBICIN HYDROCHLORIDE
     Indication: BREAST CANCER
     Dosage: SIX CYCLES

REACTIONS (5)
  - Menopausal symptoms [Unknown]
  - Arthralgia [Unknown]
  - Fatigue [Unknown]
  - Polyneuropathy [Unknown]
  - Condition aggravated [Unknown]
